FAERS Safety Report 5463507-4 (Version None)
Quarter: 2007Q3

REPORT INFORMATION
  Report Type: 
  Country: None (occurrence: None)
  Receive Date: 20070920
  Receipt Date: 20070913
  Transmission Date: 20080115
  Serious: Yes (Hospitalization)
  Sender: FDA-Public Use
  Company Number: SE-GENENTECH-243037

PATIENT
  Sex: Female
  Weight: 67 kg

DRUGS (4)
  1. RITUXIMAB [Suspect]
     Indication: LYMPHOMA
     Dosage: 67.5 MG, UNK
     Dates: start: 20070110
  2. INTERFERON ALFA [Concomitant]
     Indication: LYMPHOMA
     Dates: start: 20061227
  3. ACETAMINOPHEN [Concomitant]
     Indication: DRUG USE FOR UNKNOWN INDICATION
     Dates: start: 20070611
  4. INNOHEP [Concomitant]
     Indication: DRUG USE FOR UNKNOWN INDICATION

REACTIONS (1)
  - SPINAL CORD COMPRESSION [None]
